FAERS Safety Report 4494139-2 (Version None)
Quarter: 2004Q4

REPORT INFORMATION
  Report Type: 
  Country: None (occurrence: None)
  Receive Date: 20041104
  Receipt Date: 20041104
  Transmission Date: 20050328
  Serious: Yes (Death)
  Sender: FDA-Public Use
  Company Number: None

PATIENT
  Age: 73 Year
  Sex: Female
  Weight: 97 kg

DRUGS (1)
  1. TAMOXIFEN 20 MG [Suspect]
     Indication: BREAST CANCER
     Dosage: 20 MG QDAY PO
     Route: 048
     Dates: start: 19990719, end: 20030516

REACTIONS (1)
  - TONGUE NEOPLASM MALIGNANT STAGE UNSPECIFIED [None]
